FAERS Safety Report 7300031-8 (Version None)
Quarter: 2011Q1

REPORT INFORMATION
  Report Type: 
  Country: None (occurrence: None)
  Receive Date: 20110208
  Receipt Date: 20110128
  Transmission Date: 20110831
  Serious: Yes (Death, Life-Threatening, Hospitalization)
  Sender: FDA-Public Use
  Company Number: WAES 1101USA03462

PATIENT
  Age: 69 Year
  Sex: Female
  Weight: 58.9676 kg

DRUGS (2)
  1. DECADRON [Suspect]
     Indication: MULTIPLE MYELOMA
     Dosage: 40 MG/PO
     Route: 048
     Dates: start: 20101108, end: 20101110
  2. VELCADE [Suspect]
     Indication: MULTIPLE MYELOMA
     Dosage: 2 MG/IV
     Route: 042
     Dates: start: 20101108, end: 20101110

REACTIONS (5)
  - PLATELET COUNT DECREASED [None]
  - ARTHRALGIA [None]
  - BACK PAIN [None]
  - HAEMOGLOBIN DECREASED [None]
  - PNEUMONIA [None]
